FAERS Safety Report 16179563 (Version 1)
Quarter: 2019Q2

REPORT INFORMATION
  Report Type: Spontaneous
  Country: DE (occurrence: DE)
  Receive Date: 20190410
  Receipt Date: 20190410
  Transmission Date: 20190711
  Serious: Yes (Other)
  Sender: FDA-Public Use
  Company Number: PHHY2019DE079727

PATIENT
  Age: 36 Year
  Sex: Female

DRUGS (12)
  1. CEFOTAXIME [Concomitant]
     Active Substance: CEFOTAXIME SODIUM
     Indication: ANTIBIOTIC PROPHYLAXIS
     Dosage: 4000 MG, QD
     Route: 042
     Dates: start: 20180801
  2. EXFORGE HCT [Suspect]
     Active Substance: AMLODIPINE BESYLATE\HYDROCHLOROTHIAZIDE\VALSARTAN
     Indication: HYPERTENSION
     Dosage: 160 MG, QD (12.5 [MG/D ] / 10 [MG/D ] / 160 [MG/D ])
     Route: 048
  3. CELESTAN [Concomitant]
     Active Substance: BETAMETHASONE
     Indication: MATERNAL THERAPY TO ENHANCE FOETAL LUNG MATURITY
     Dosage: 12 MG, QD
     Route: 030
     Dates: start: 20180801
  4. NITRODERM [Concomitant]
     Active Substance: NITROGLYCERIN
     Indication: TOCOLYSIS
     Dosage: 20 [MG/D ]
     Route: 062
     Dates: start: 20180801
  5. GYNOFLOR [Concomitant]
     Indication: PRODUCT USED FOR UNKNOWN INDICATION
     Dosage: UNK
     Route: 067
  6. CLEXANE [Concomitant]
     Active Substance: ENOXAPARIN SODIUM
     Dosage: 40 MG, QD
     Route: 058
     Dates: start: 20180812
  7. AMPICILLIN [Concomitant]
     Active Substance: AMPICILLIN
     Dosage: 6000 [MG/D ]
     Route: 042
     Dates: start: 20180807
  8. CELESTAN [Concomitant]
     Active Substance: BETAMETHASONE
     Dosage: 12 MG, QD
     Route: 030
     Dates: start: 20180802
  9. AMPICILLIN [Concomitant]
     Active Substance: AMPICILLIN
     Indication: ANTIBIOTIC PROPHYLAXIS
     Dosage: 6000 [MG/D ]
     Route: 042
     Dates: start: 20180801
  10. NITRODERM [Concomitant]
     Active Substance: NITROGLYCERIN
     Dosage: 20 [MG/D ]
     Route: 062
     Dates: start: 20180802
  11. CLEXANE [Concomitant]
     Active Substance: ENOXAPARIN SODIUM
     Indication: THROMBOSIS PROPHYLAXIS
     Dosage: 40 MG, QD
     Route: 058
     Dates: start: 20180801
  12. CEFOTAXIME [Concomitant]
     Active Substance: CEFOTAXIME SODIUM
     Dosage: 4000 MG, QD
     Route: 042
     Dates: start: 20180807

REACTIONS (3)
  - Exposure during pregnancy [Unknown]
  - Gestational diabetes [Recovered/Resolved]
  - Oligohydramnios [Recovered/Resolved]
